FAERS Safety Report 19379391 (Version 6)
Quarter: 2021Q3

REPORT INFORMATION
  Report Type: Report from Study
  Country: US (occurrence: US)
  Receive Date: 20210607
  Receipt Date: 20210923
  Transmission Date: 20211014
  Serious: Yes (Other)
  Sender: FDA-Public Use
  Company Number: NVSC2021US125423

PATIENT
  Sex: Male

DRUGS (3)
  1. COSENTYX [Suspect]
     Active Substance: SECUKINUMAB
     Indication: PSORIASIS
     Dosage: 150 MG, QMO(BENEATH THE SKIN)
     Route: 058
  2. COSENTYX [Suspect]
     Active Substance: SECUKINUMAB
     Dosage: 300 MG, Q4W
     Route: 058
  3. COSENTYX [Suspect]
     Active Substance: SECUKINUMAB
     Dosage: 300 MG, Q4W (MID JUL)
     Route: 058
     Dates: start: 202107

REACTIONS (6)
  - Skin cancer [Unknown]
  - Arthritis [Unknown]
  - Asthenia [Unknown]
  - Intervertebral disc protrusion [Unknown]
  - Back pain [Unknown]
  - Arthralgia [Unknown]
